FAERS Safety Report 14149863 (Version 2)
Quarter: 2017Q4

REPORT INFORMATION
  Report Type: Spontaneous
  Country: JP (occurrence: JP)
  Receive Date: 20171101
  Receipt Date: 20171113
  Transmission Date: 20180321
  Serious: Yes (Other)
  Sender: FDA-Public Use
  Company Number: JP-MYLANLABS-2017M1068460

PATIENT
  Age: 71 Year
  Sex: Female

DRUGS (6)
  1. MAGNESIUM CITRATE. [Suspect]
     Active Substance: MAGNESIUM CITRATE
     Indication: PRODUCT USED FOR UNKNOWN INDICATION
     Route: 048
  2. PICOSULFATE [Suspect]
     Active Substance: SODIUM PICOSULFATE
     Indication: PRODUCT USED FOR UNKNOWN INDICATION
     Dosage: 150 MG, QD
     Route: 048
  3. MAGNESIUM CITRATE. [Suspect]
     Active Substance: MAGNESIUM CITRATE
     Route: 048
  4. PICOSULFATE [Suspect]
     Active Substance: SODIUM PICOSULFATE
     Route: 048
  5. MIDAZOLAM [Concomitant]
     Active Substance: MIDAZOLAM HYDROCHLORIDE
     Route: 041
  6. MIDAZOLAM [Concomitant]
     Active Substance: MIDAZOLAM HYDROCHLORIDE
     Indication: PRODUCT USED FOR UNKNOWN INDICATION
     Route: 041

REACTIONS (1)
  - Inappropriate antidiuretic hormone secretion [Recovering/Resolving]
